FAERS Safety Report 21436324 (Version 2)
Quarter: 2022Q4

REPORT INFORMATION
  Report Type: Spontaneous
  Country: RU (occurrence: RU)
  Receive Date: 20221010
  Receipt Date: 20221017
  Transmission Date: 20230113
  Serious: Yes (Death, Other)
  Sender: FDA-Public Use
  Company Number: RU-BIOVITRUM-2022RU10969

PATIENT
  Age: 75 Year
  Sex: Male

DRUGS (3)
  1. ANAKINRA [Suspect]
     Active Substance: ANAKINRA
     Indication: COVID-19
     Dates: start: 20220114, end: 20220123
  2. ANAKINRA [Suspect]
     Active Substance: ANAKINRA
     Indication: Pneumonia
  3. ANAKINRA [Suspect]
     Active Substance: ANAKINRA
     Indication: Acute respiratory distress syndrome

REACTIONS (4)
  - Acute respiratory distress syndrome [Fatal]
  - COVID-19 [Fatal]
  - Atrial fibrillation [Unknown]
  - Off label use [Recovered/Resolved]

NARRATIVE: CASE EVENT DATE: 20220114
